FAERS Safety Report 11625718 (Version 4)
Quarter: 2016Q1

REPORT INFORMATION
  Report Type: Spontaneous
  Country: BR (occurrence: BR)
  Receive Date: 20151013
  Receipt Date: 20160314
  Transmission Date: 20160525
  Serious: Yes (Death, Hospitalization, Other)
  Sender: FDA-Public Use
  Company Number: BR-PFIZER INC-2015329584

PATIENT
  Age: 42 Year
  Sex: Female
  Weight: 70 kg

DRUGS (2)
  1. SUTENT [Suspect]
     Active Substance: SUNITINIB MALATE
     Dosage: 50 MG, CYCLIC (USING 4 DAYS AND STOPPING 3)
     Route: 048
     Dates: start: 2015, end: 201511
  2. SUTENT [Suspect]
     Active Substance: SUNITINIB MALATE
     Indication: METASTATIC RENAL CELL CARCINOMA
     Dosage: 50 MG, CYCLIC (CYCLE 4X2)
     Route: 048
     Dates: start: 20150825

REACTIONS (9)
  - Cardio-respiratory arrest [Fatal]
  - Haemorrhage [Recovered/Resolved]
  - Swelling [Not Recovered/Not Resolved]
  - Disease progression [Fatal]
  - Metastatic renal cell carcinoma [Fatal]
  - Haemoglobin decreased [Recovered/Resolved]
  - Blood blister [Recovered/Resolved]
  - Blister rupture [Recovered/Resolved]
  - Anal haemorrhage [Recovered/Resolved]

NARRATIVE: CASE EVENT DATE: 2015
